FAERS Safety Report 8589953-8 (Version None)
Quarter: 2012Q3

REPORT INFORMATION
  Report Type: 
  Country: None (occurrence: None)
  Receive Date: 20120813
  Receipt Date: 20120808
  Transmission Date: 20120928
  Serious: Yes (Hospitalization)
  Sender: FDA-Public Use
  Company Number: FR-ROCHE-1099409

PATIENT
  Sex: Male

DRUGS (3)
  1. NEORAL [Suspect]
     Indication: TRANSPLANT REJECTION
     Route: 002
     Dates: start: 20110213
  2. PREDNISOLONE [Suspect]
     Indication: TRANSPLANT REJECTION
     Route: 002
     Dates: start: 20110213
  3. CELLCEPT [Suspect]
     Indication: TRANSPLANT REJECTION
     Route: 002
     Dates: start: 20110213

REACTIONS (3)
  - GENERAL PHYSICAL HEALTH DETERIORATION [None]
  - DIARRHOEA [None]
  - DEHYDRATION [None]
